FAERS Safety Report 6539126-5 (Version None)
Quarter: 2010Q1

REPORT INFORMATION
  Report Type: 
  Country: None (occurrence: None)
  Receive Date: 20100115
  Receipt Date: 20100113
  Transmission Date: 20100710
  Serious: Yes (Life-Threatening, Hospitalization, Other)
  Sender: FDA-Public Use
  Company Number: PHEH2009US17726

PATIENT
  Sex: Female

DRUGS (2)
  1. EXJADE [Suspect]
     Indication: IRON OVERLOAD
     Dosage: 1250 MG, QD
     Route: 048
     Dates: start: 20090806
  2. IBUPROFEN [Concomitant]
     Indication: PAIN
     Dosage: 600-800 MG Q6HOURS PRN
     Route: 048

REACTIONS (5)
  - ACUTE CHEST SYNDROME [None]
  - HYPOXIA [None]
  - LUNG INFILTRATION [None]
  - PAIN [None]
  - SICKLE CELL ANAEMIA WITH CRISIS [None]
